FAERS Safety Report 9126497 (Version 1)
Quarter: 2013Q1

REPORT INFORMATION
  Report Type: Spontaneous
  Country: IE (occurrence: IE)
  Receive Date: 20130117
  Receipt Date: 20130117
  Transmission Date: 20140127
  Serious: Yes (Hospitalization)
  Sender: FDA-Public Use
  Company Number: IE-MPIJNJ-2013-00356

PATIENT
  Sex: 0

DRUGS (4)
  1. VELCADE [Suspect]
     Indication: PRODUCT USED FOR UNKNOWN INDICATION
     Dosage: 1.8 MG/M2, CYCLIC
     Route: 042
     Dates: start: 20121004
  2. VALTREX [Concomitant]
  3. CLEXANE [Concomitant]
  4. CARDICOR [Concomitant]

REACTIONS (1)
  - Hospitalisation [Unknown]
